FAERS Safety Report 8664362 (Version 3)
Quarter: 2015Q3

REPORT INFORMATION
  Report Type: Report from Study
  Country: US (occurrence: US)
  Receive Date: 20120713
  Receipt Date: 20150909
  Transmission Date: 20151125
  Serious: Yes (Hospitalization, Other)
  Sender: FDA-Public Use
  Company Number: US-BRISTOL-MYERS SQUIBB COMPANY-16743130

PATIENT
  Age: 63 Year
  Sex: Male
  Weight: 109 kg

DRUGS (2)
  1. IPILIMUMAB [Suspect]
     Active Substance: IPILIMUMAB
     Indication: MALIGNANT MELANOMA
     Dosage: 3 MG/KG, TOTAL
     Route: 042
     Dates: start: 20120503
  2. IPILIMUMAB [Suspect]
     Active Substance: IPILIMUMAB
     Dosage: 340 MG, UNK
     Route: 042
     Dates: start: 20120614

REACTIONS (3)
  - Diarrhoea [Not Recovered/Not Resolved]
  - Lymphocyte count decreased [Not Recovered/Not Resolved]
  - Diverticulitis [Unknown]

NARRATIVE: CASE EVENT DATE: 201206
